FAERS Safety Report 9400106 (Version 1)
Quarter: 2013Q3

REPORT INFORMATION
  Report Type: Spontaneous
  Country: US (occurrence: US)
  Receive Date: 20130715
  Receipt Date: 20130715
  Transmission Date: 20140515
  Serious: Yes (Other)
  Sender: FDA-Public Use
  Company Number: US-COVIDIEN/TYCO HEALTHCARE/MALLINCKRODT-T201303615

PATIENT
  Sex: Female

DRUGS (1)
  1. GABLOFEN [Suspect]
     Indication: MUSCLE SPASTICITY
     Dosage: 425.6 MCG/DAY
     Route: 037

REACTIONS (3)
  - Seroma [Unknown]
  - Muscle spasticity [Unknown]
  - Device failure [Unknown]
